FAERS Safety Report 25729272 (Version 1)
Quarter: 2025Q3

REPORT INFORMATION
  Report Type: Spontaneous
  Country: BR (occurrence: BR)
  Receive Date: 20250827
  Receipt Date: 20250827
  Transmission Date: 20251021
  Serious: Yes (Death, Hospitalization, Other)
  Sender: AMGEN
  Company Number: BR-AMGEN-BRASP2025165135

PATIENT
  Age: 85 Year
  Sex: Female

DRUGS (1)
  1. PROLIA [Suspect]
     Active Substance: DENOSUMAB
     Indication: Product used for unknown indication
     Route: 065

REACTIONS (5)
  - Disease complication [Fatal]
  - Cardiac disorder [Unknown]
  - Renal disorder [Unknown]
  - Thoracic vertebral fracture [Unknown]
  - Inappropriate schedule of product administration [Unknown]
